FAERS Safety Report 11225243 (Version 4)
Quarter: 2020Q4

REPORT INFORMATION
  Report Type: Spontaneous
  Country: US (occurrence: US)
  Receive Date: 20150629
  Receipt Date: 20201216
  Transmission Date: 20210113
  Serious: Yes (Hospitalization, Disabling, Other)
  Sender: FDA-Public Use
  Company Number: US-PFIZER INC-2015211992

PATIENT
  Age: 60 Year
  Sex: Female
  Weight: 79 kg

DRUGS (5)
  1. ATIVAN [Suspect]
     Active Substance: LORAZEPAM
     Dosage: 0.5 MG, 1X/DAY
  2. NORVASC [Suspect]
     Active Substance: AMLODIPINE BESYLATE
     Indication: HYPERTENSION
     Dosage: 10 MG, 1X/DAY
     Route: 048
     Dates: end: 201407
  3. MAXZIDE [Suspect]
     Active Substance: HYDROCHLOROTHIAZIDE\TRIAMTERENE
     Dosage: UNK
  4. LISINOPRIL. [Concomitant]
     Active Substance: LISINOPRIL
     Dosage: UNK
     Dates: start: 2014
  5. PREVAIL-FX ONE STEP [Suspect]
     Active Substance: ISOPROPYL ALCOHOL\POVIDONE-IODINE
     Dosage: UNK

REACTIONS (25)
  - Coma [Unknown]
  - Facial pain [Unknown]
  - Leukaemia [Not Recovered/Not Resolved]
  - Joint swelling [Recovered/Resolved]
  - Chest pain [Not Recovered/Not Resolved]
  - Pain [Unknown]
  - Temporomandibular joint syndrome [Not Recovered/Not Resolved]
  - Anaphylactic shock [Unknown]
  - Heart rate decreased [Unknown]
  - Blood calcium increased [Unknown]
  - Swelling face [Unknown]
  - Pneumonia [Unknown]
  - Fatigue [Unknown]
  - Swollen tongue [Unknown]
  - Pyrexia [Unknown]
  - Migraine [Unknown]
  - Asthenia [Unknown]
  - Hypertension [Unknown]
  - Myocardial infarction [Unknown]
  - Drug ineffective [Unknown]
  - Cough [Unknown]
  - Dehydration [Unknown]
  - Weight decreased [Unknown]
  - Chills [Unknown]
  - Tremor [Unknown]

NARRATIVE: CASE EVENT DATE: 2012
